FAERS Safety Report 7571529-2 (Version None)
Quarter: 2011Q2

REPORT INFORMATION
  Report Type: 
  Country: None (occurrence: None)
  Receive Date: 20110624
  Receipt Date: 20110614
  Transmission Date: 20111010
  Serious: Yes (Other)
  Sender: FDA-Public Use
  Company Number: US-JNJFOC-20110606636

PATIENT

DRUGS (5)
  1. THALIDOMIDE [Suspect]
     Indication: MULTIPLE MYELOMA
     Dosage: SIX, 28 DAYS CYCLES: 200 MG ADMINISTERED THROUGHOUT THE STUDY
     Route: 048
  2. WARFARIN SODIUM [Concomitant]
     Indication: THROMBOSIS PROPHYLAXIS
     Dosage: SIX, 28 DAYS CYCLES: 200 MG ADMINISTERED THROUGHOUT THE STUDY
     Route: 065
  3. DOXORUBICIN HYDROCHLORIDE [Suspect]
     Indication: MULTIPLE MYELOMA
     Dosage: SIX, 28 DAYS CYCLE: 20 MG/M2 ADMINISTERED ON DAYS 1 AND 15
     Route: 042
  4. ACYCLOVIR [Concomitant]
     Indication: PROPHYLAXIS
     Dosage: SIX, 28 DAYS CYCLES: 200 MG ADMINISTERED THROUGHOUT THE STUDY
     Route: 048
  5. BORTEZOMIB [Suspect]
     Indication: MULTIPLE MYELOMA
     Dosage: SIX, 28 DAYS CYCLES: 1.3 MG/M2 ADMINISTERED ON DAYS 1,4,15 AND 18
     Route: 042

REACTIONS (1)
  - OEDEMA [None]
